FAERS Safety Report 15083807 (Version 3)
Quarter: 2021Q1

REPORT INFORMATION
  Report Type: Spontaneous
  Country: US (occurrence: US)
  Receive Date: 20180628
  Receipt Date: 20210106
  Transmission Date: 20210419
  Serious: No
  Sender: FDA-Public Use
  Company Number: US-TEVA-2018-US-912290

PATIENT
  Sex: Female

DRUGS (4)
  1. QVAR [Suspect]
     Active Substance: BECLOMETHASONE DIPROPIONATE
  2. QVAR REDIHALER [Suspect]
     Active Substance: BECLOMETHASONE DIPROPIONATE
     Indication: ASTHMA
     Dosage: 1 PUFF TWICE DAILY
     Dates: start: 20180613
  3. QVAR REDIHALER [Suspect]
     Active Substance: BECLOMETHASONE DIPROPIONATE
     Indication: DYSPNOEA
     Dates: start: 20180613
  4. QVAR [Suspect]
     Active Substance: BECLOMETHASONE DIPROPIONATE
     Indication: ASTHMA
     Route: 065

REACTIONS (6)
  - Eye pain [Unknown]
  - Fatigue [Unknown]
  - Burning sensation [Unknown]
  - Lacrimation increased [Unknown]
  - Throat irritation [Unknown]
  - Headache [Unknown]

NARRATIVE: CASE EVENT DATE: 201806
